FAERS Safety Report 13012322 (Version 3)
Quarter: 2017Q1

REPORT INFORMATION
  Report Type: Spontaneous
  Country: US (occurrence: US)
  Receive Date: 20161209
  Receipt Date: 20170120
  Transmission Date: 20170428
  Serious: No
  Sender: FDA-Public Use
  Company Number: US-PFIZER INC-2016376039

PATIENT
  Age: 66 Year
  Sex: Female

DRUGS (32)
  1. MIRAPEX [Concomitant]
     Active Substance: PRAMIPEXOLE DIHYDROCHLORIDE
     Indication: PARKINSON^S DISEASE
     Dosage: 1 MG,  (9 AM: 1 TABLET(S))
  2. LASIX [Concomitant]
     Active Substance: FUROSEMIDE
     Indication: POLYURIA
     Dosage: 40 MG, (9 AM: 1 TABLET(S))
  3. VITAMIN D [Concomitant]
     Active Substance: CHOLECALCIFEROL
     Indication: BONE DISORDER
     Dosage: (7 AM: 3 TABLET(S))
  4. PRILOSEC [Concomitant]
     Active Substance: OMEPRAZOLE MAGNESIUM
     Indication: GASTRIC ULCER
     Dosage: 20 MG,  (9 AM: 1 CAPSULE)
  5. LYRICA [Suspect]
     Active Substance: PREGABALIN
     Indication: SEIZURE
     Dosage: 100 MG, 2X/DAY
     Route: 048
  6. FERROUS SULFATE. [Concomitant]
     Active Substance: FERROUS SULFATE
     Indication: NUTRITIONAL SUPPLEMENTATION
     Dosage: 325 MG, (9 AM: 1 TABLET(S))
  7. ATENOLOL. [Concomitant]
     Active Substance: ATENOLOL
     Indication: BLOOD PRESSURE ABNORMAL
     Dosage: 25 MG,  (9 AM: 1 TABLET(S))
  8. WELCHOL [Concomitant]
     Active Substance: COLESEVELAM HYDROCHLORIDE
     Indication: BLOOD CHOLESTEROL INCREASED
     Dosage: 1875 MG,  (12 N:3 TABLET(S); 6 PM: 3 TABLET(S))
  9. SPIRONOLACTONE. [Concomitant]
     Active Substance: SPIRONOLACTONE
     Indication: POLYURIA
     Dosage: (9 AM: TABLET(S)
  10. VENTOLIN [Concomitant]
     Active Substance: ALBUTEROL SULFATE
     Indication: CHRONIC OBSTRUCTIVE PULMONARY DISEASE
  11. ATORVASTATIN [Concomitant]
     Active Substance: ATORVASTATIN
     Indication: BLOOD CHOLESTEROL INCREASED
     Dosage: 20 MG, 1X/DAY (9 PM 1 TABLET)
  12. TOUJEO [Concomitant]
     Active Substance: INSULIN GLARGINE
     Indication: BLOOD GLUCOSE ABNORMAL
     Dosage: 22 IU, UNK
  13. LYRICA [Suspect]
     Active Substance: PREGABALIN
     Indication: CERVICAL SPINAL STENOSIS
  14. VENTOLIN [Concomitant]
     Active Substance: ALBUTEROL SULFATE
     Indication: ASTHMA
     Dosage: UNK(90 MCG/DOSE PUFF(S)) UNK, (2 PUFFS EVERY 4-6 HRS), AS NEEDED
  15. EFFEXOR XR [Concomitant]
     Active Substance: VENLAFAXINE HYDROCHLORIDE
     Dosage: 300 MG, 1X/DAY
     Route: 048
  16. PRANDIN [Concomitant]
     Active Substance: REPAGLINIDE
     Indication: BLOOD GLUCOSE ABNORMAL
     Dosage: (7 AM: 1 TABLET(S); 12 N: 1TABLET(S); 6 PM: 2 TABLET(S))
  17. FOLBEE PLUS [Concomitant]
     Indication: NUTRITIONAL SUPPLEMENTATION
     Dosage: 1 DF, 1X/DAY (7 AM 1 TABLET)
  18. EFFEXOR XR [Concomitant]
     Active Substance: VENLAFAXINE HYDROCHLORIDE
     Indication: AFFECTIVE DISORDER
     Dosage: 150 MG, 1X/DAY
     Route: 048
  19. HUMALOG [Concomitant]
     Active Substance: INSULIN LISPRO
     Indication: BLOOD GLUCOSE ABNORMAL
     Dosage: BREAKFAST: 2 UNIT(S), LUNCH: 0 UNIT(S) AND DINNER: 4 UNIT(S)
  20. COZAAR [Concomitant]
     Active Substance: LOSARTAN POTASSIUM
     Indication: BLOOD PRESSURE ABNORMAL
     Dosage: 50 MG, (9 AM: 1 TABLET)
  21. PRILOSEC [Concomitant]
     Active Substance: OMEPRAZOLE MAGNESIUM
     Indication: DYSPEPSIA
  22. FLOVENT [Concomitant]
     Active Substance: FLUTICASONE PROPIONATE
     Indication: ASTHMA
     Dosage: UNK, 2X/DAY  (110 MCG PUFF(S) (2 PUFFS, DAILY)
  23. PRESERVISION AREDS [Concomitant]
     Active Substance: MINERALS\VITAMINS
     Indication: MINERAL SUPPLEMENTATION
     Dosage: 7 AM: 1 SOFT GEL(S) AND 9 PM: 1 SOFT GEL(S)
  24. TRAMADOL HYDROCHLORIDE. [Concomitant]
     Active Substance: TRAMADOL HYDROCHLORIDE
     Indication: ANALGESIC THERAPY
     Dosage: (7 AM: 2 TABLET(S); 11 AM: 2 TABLET(S); 9 AM: 2 TABLET(S))
  25. LYRICA [Suspect]
     Active Substance: PREGABALIN
     Indication: NEURALGIA
     Dosage: 200 MG, 2X/DAY (AT THESE TIMES; 7 AM: 2 CAPSULE(S); 9 AM: 2 CAPSULE(S)
     Route: 048
  26. TRULICITY [Concomitant]
     Active Substance: DULAGLUTIDE
     Indication: DIABETES MELLITUS
     Dosage: 0.75 MG/ 0.5 MI PEN INJECTION, WEEKLY (ONCE)
  27. PRESERVISION AREDS [Concomitant]
     Active Substance: MINERALS\VITAMINS
     Indication: EYE DISORDER
  28. OMEGA 3 ACID ETHYL ESTERS [Concomitant]
     Active Substance: OMEGA-3-ACID ETHYL ESTERS
     Indication: BLOOD TRIGLYCERIDES INCREASED
     Dosage: 1 G, (7 AM: 1 CAPSULE(S))
  29. FLOVENT [Concomitant]
     Active Substance: FLUTICASONE PROPIONATE
     Indication: SWELLING
  30. FLOVENT [Concomitant]
     Active Substance: FLUTICASONE PROPIONATE
     Indication: INFLAMMATION
  31. PRESERVISION AREDS [Concomitant]
     Active Substance: MINERALS\VITAMINS
     Indication: VITAMIN SUPPLEMENTATION
  32. EFFEXOR XR [Concomitant]
     Active Substance: VENLAFAXINE HYDROCHLORIDE
     Indication: DEPRESSION
     Dosage: 75 MG 2 PO QHS
     Route: 048

REACTIONS (1)
  - Pain [Unknown]
